FAERS Safety Report 13284394 (Version 1)
Quarter: 2017Q1

REPORT INFORMATION
  Report Type: Spontaneous
  Country: FR (occurrence: FR)
  Receive Date: 20170301
  Receipt Date: 20170301
  Transmission Date: 20170428
  Serious: Yes (Other)
  Sender: FDA-Public Use
  Company Number: FR-BRISTOL-MYERS SQUIBB COMPANY-BMS-2017-014822

PATIENT
  Sex: Male

DRUGS (1)
  1. ELISOR [Suspect]
     Active Substance: PRAVASTATIN SODIUM
     Indication: CARDIOVASCULAR EVENT PROPHYLAXIS
     Dosage: 20 MG, UNK
     Route: 048
     Dates: start: 20000305, end: 20151014

REACTIONS (6)
  - Myocardial infarction [Recovered/Resolved with Sequelae]
  - Constipation [Recovered/Resolved]
  - Insomnia [Recovered/Resolved]
  - Neck pain [Recovering/Resolving]
  - Renal failure [Recovering/Resolving]
  - Tendonitis [Recovering/Resolving]
